FAERS Safety Report 5085328-7 (Version None)
Quarter: 2006Q3

REPORT INFORMATION
  Report Type: 
  Country: None (occurrence: None)
  Receive Date: 20060817
  Receipt Date: 20060803
  Transmission Date: 20061208
  Serious: Yes (Hospitalization, Other)
  Sender: FDA-Public Use
  Company Number: 2006035024

PATIENT
  Age: 71 Year
  Sex: Male
  Weight: 84.369 kg

DRUGS (7)
  1. BEXTRA [Suspect]
     Indication: OSTEOARTHRITIS
     Dosage: 20 MG (20 MG, 1 IN 1 D), ORAL
     Route: 048
     Dates: start: 20030214, end: 20030220
  2. GLUCOTROL [Concomitant]
  3. LISINOPRIL [Concomitant]
  4. LIPITOR [Concomitant]
  5. GLUCOPHAGE [Concomitant]
  6. VICODIN [Concomitant]
  7. VASOTEC [Concomitant]

REACTIONS (10)
  - ACUTE MYOCARDIAL INFARCTION [None]
  - BARRETT'S OESOPHAGUS [None]
  - DEHYDRATION [None]
  - FOLLICULITIS [None]
  - GASTRITIS [None]
  - HYPERSENSITIVITY [None]
  - HYPOTENSION [None]
  - PROTHROMBIN TIME PROLONGED [None]
  - RENAL FAILURE ACUTE [None]
  - STEVENS-JOHNSON SYNDROME [None]
